FAERS Safety Report 4934160-0 (Version None)
Quarter: 2006Q1

REPORT INFORMATION
  Report Type: 
  Country: None (occurrence: None)
  Receive Date: 20060303
  Receipt Date: 20060220
  Transmission Date: 20060701
  Serious: Yes (Other)
  Sender: FDA-Public Use
  Company Number: 2006024767

PATIENT
  Age: 48 Year
  Sex: Female
  Weight: 48.5349 kg

DRUGS (7)
  1. NEURONTIN [Suspect]
     Indication: SCIATICA
     Dosage: 1800 MG (600 MG, 3 IN 1 D),
     Dates: start: 20040101, end: 20060201
  2. LYRICA [Suspect]
     Indication: SCIATICA
     Dosage: 50 MG (50 MG, 1 IN 1 D)
     Dates: start: 20060201
  3. PAXIL CR [Concomitant]
  4. PREMARIN [Concomitant]
  5. LORTAB [Concomitant]
  6. METHADONE HCL [Concomitant]
  7. DURAGESIC-100 [Concomitant]

REACTIONS (2)
  - BARRETT'S OESOPHAGUS [None]
  - SOMNOLENCE [None]
